FAERS Safety Report 5278481-3 (Version None)
Quarter: 2007Q1

REPORT INFORMATION
  Report Type: 
  Country: None (occurrence: None)
  Receive Date: 20070322
  Receipt Date: 20070315
  Transmission Date: 20070707
  Serious: Yes (Hospitalization)
  Sender: FDA-Public Use
  Company Number: JPI-P-000900

PATIENT
  Age: 33 Year
  Sex: Male
  Weight: 111 kg

DRUGS (4)
  1. XYREM [Suspect]
     Indication: SLEEP DISORDER
     Dosage: 9 GM (4.5 GM, 2 IN 1 D), ORAL
     Route: 048
  2. AMBIEN [Concomitant]
  3. XANAX [Concomitant]
  4. SELEGILINE PATCH (SELEGILINE HYDROCHLORIDE) [Concomitant]

REACTIONS (4)
  - BIPOLAR DISORDER [None]
  - CONVULSION [None]
  - INSOMNIA [None]
  - TREATMENT NONCOMPLIANCE [None]
